FAERS Safety Report 7504732-8 (Version None)
Quarter: 2011Q2

REPORT INFORMATION
  Report Type: 
  Country: None (occurrence: None)
  Receive Date: 20110525
  Receipt Date: 20101021
  Transmission Date: 20111010
  Serious: No
  Sender: FDA-Public Use
  Company Number: US-AMGEN-USASP2010001298

PATIENT
  Age: 81 Year
  Sex: Female

DRUGS (3)
  1. ARANESP [Suspect]
     Indication: ANAEMIA OF MALIGNANT DISEASE
     Dates: start: 20080101
  2. PLAQUENIL [Concomitant]
  3. REVLIMID [Concomitant]

REACTIONS (1)
  - BLOOD ERYTHROPOIETIN INCREASED [None]
